FAERS Safety Report 10902148 (Version 1)
Quarter: 2015Q1

REPORT INFORMATION
  Report Type: Spontaneous
  Country: JP (occurrence: JP)
  Receive Date: 20150310
  Receipt Date: 20150310
  Transmission Date: 20150721
  Serious: Yes (Hospitalization)
  Sender: FDA-Public Use
  Company Number: JP-PFIZER INC-2015081235

PATIENT
  Age: 62 Year
  Sex: Male

DRUGS (15)
  1. ALDACTONE [Concomitant]
     Active Substance: SPIRONOLACTONE
     Route: 048
  2. PROCYLIN [Concomitant]
     Active Substance: BERAPROST SODIUM
     Indication: PULMONARY HYPERTENSION
     Route: 048
  3. LASIX [Concomitant]
     Active Substance: FUROSEMIDE
     Route: 048
  4. ULCERLMIN [Concomitant]
     Active Substance: SUCRALFATE
     Route: 048
  5. SINGULAIR [Concomitant]
     Active Substance: MONTELUKAST SODIUM
     Route: 048
  6. PARIET [Concomitant]
     Active Substance: RABEPRAZOLE SODIUM
     Route: 048
  7. LENDORMIN [Concomitant]
     Active Substance: BROTIZOLAM
     Route: 048
  8. RENIVACE [Concomitant]
     Active Substance: ENALAPRIL
     Indication: PULMONARY HYPERTENSION
     Route: 048
  9. NORVASC [Concomitant]
     Active Substance: AMLODIPINE BESYLATE
     Indication: PULMONARY HYPERTENSION
     Dosage: UNK
     Route: 048
  10. VOLIBRIS [Concomitant]
     Active Substance: AMBRISENTAN
     Indication: PULMONARY HYPERTENSION
     Dosage: UNK
     Route: 048
     Dates: start: 20131118
  11. WARFARIN [Concomitant]
     Active Substance: WARFARIN
     Dosage: UNK
     Route: 048
  12. WARFARIN K NS [Concomitant]
     Dosage: UNK
     Route: 048
     Dates: start: 20131219
  13. REVATIO [Suspect]
     Active Substance: SILDENAFIL CITRATE
     Dosage: 20 MG, 3X/DAY
     Route: 048
     Dates: start: 20120220
  14. MUCODYNE [Concomitant]
     Active Substance: CARBOCYSTEINE
     Route: 048
  15. PULMICORT TURBUHALER [Concomitant]
     Active Substance: BUDESONIDE
     Route: 055

REACTIONS (3)
  - Pneumonia pneumococcal [Recovered/Resolved]
  - Asthma [Recovering/Resolving]
  - Oropharyngeal pain [Recovered/Resolved]

NARRATIVE: CASE EVENT DATE: 20130708
